FAERS Safety Report 11424005 (Version 1)
Quarter: 2015Q3

REPORT INFORMATION
  Report Type: Spontaneous
  Country: IT (occurrence: IT)
  Receive Date: 20150827
  Receipt Date: 20150827
  Transmission Date: 20151125
  Serious: Yes (Hospitalization)
  Sender: FDA-Public Use
  Company Number: IT-SA-2015SA128297

PATIENT
  Age: 81 Year
  Sex: Male

DRUGS (6)
  1. COMBIGAN [Concomitant]
     Active Substance: BRIMONIDINE TARTRATE\TIMOLOL MALEATE
     Route: 047
  2. KANRENOL [Concomitant]
     Active Substance: CANRENOATE POTASSIUM
     Route: 048
  3. DILATREND [Concomitant]
     Active Substance: CARVEDILOL
     Route: 048
  4. CARDIOASPIRIN [Concomitant]
     Active Substance: ASPIRIN
     Route: 048
  5. LASIX [Suspect]
     Active Substance: FUROSEMIDE
     Indication: ANURIA
     Dosage: DOSE:1 UNIT(S)
     Route: 048
     Dates: start: 20150101, end: 20150607
  6. PEPTAZOL [Concomitant]
     Active Substance: PANTOPRAZOLE SODIUM
     Route: 048

REACTIONS (3)
  - Acute pulmonary oedema [Unknown]
  - Dyspnoea [Unknown]
  - Treatment noncompliance [Unknown]

NARRATIVE: CASE EVENT DATE: 20150707
